FAERS Safety Report 9594588 (Version 1)
Quarter: 2013Q4

REPORT INFORMATION
  Report Type: Spontaneous
  Country: US (occurrence: None)
  Receive Date: 20131002
  Receipt Date: 20131002
  Transmission Date: 20140711
  Serious: Yes (Other)
  Sender: FDA-Public Use
  Company Number: US-MACLEODS PHARMA-000137

PATIENT
  Age: 43 Year
  Sex: Male

DRUGS (1)
  1. DONEPEZIL [Suspect]
     Indication: FRONTOTEMPORAL DEMENTIA

REACTIONS (3)
  - Delirium [None]
  - Hypercholesterolaemia [None]
  - Hypertriglyceridaemia [None]
